FAERS Safety Report 15084776 (Version 5)
Quarter: 2018Q4

REPORT INFORMATION
  Report Type: Report from Study
  Country: US (occurrence: US)
  Receive Date: 20180628
  Receipt Date: 20181101
  Transmission Date: 20190204
  Serious: Yes (Hospitalization)
  Sender: FDA-Public Use
  Company Number: US-ACTELION-A-US2018-172611

PATIENT
  Age: 69 Year
  Sex: Female

DRUGS (15)
  1. PROTONIX [Concomitant]
     Active Substance: PANTOPRAZOLE SODIUM
  2. ASPIRIN. [Concomitant]
     Active Substance: ASPIRIN
  3. FISH OIL [Concomitant]
     Active Substance: FISH OIL
  4. BENTYL [Concomitant]
     Active Substance: DICYCLOMINE HYDROCHLORIDE
  5. VELETRI [Suspect]
     Active Substance: EPOPROSTENOL
     Dosage: 30 NG/KG, PER MIN
     Route: 042
  6. VELETRI [Suspect]
     Active Substance: EPOPROSTENOL
     Dosage: 26 NG/KG, PER MIN
     Route: 042
     Dates: start: 20170104
  7. FERROUS SULFATE. [Concomitant]
     Active Substance: FERROUS SULFATE
  8. LOSARTAN. [Concomitant]
     Active Substance: LOSARTAN
  9. MICROZIDE [Concomitant]
     Active Substance: HYDROCHLOROTHIAZIDE
  10. NORVASC [Concomitant]
     Active Substance: AMLODIPINE BESYLATE
  11. VITAMIN B12 [Concomitant]
     Active Substance: CYANOCOBALAMIN
  12. VELETRI [Suspect]
     Active Substance: EPOPROSTENOL
     Dosage: 28 NG/KG, PER MIN
     Route: 042
     Dates: start: 20161224
  13. OPSUMIT [Suspect]
     Active Substance: MACITENTAN
     Indication: PULMONARY ARTERIAL HYPERTENSION
     Dosage: 10 MG, QD
     Route: 048
     Dates: start: 20171108
  14. VELETRI [Suspect]
     Active Substance: EPOPROSTENOL
     Indication: PULMONARY ARTERIAL HYPERTENSION
     Dosage: 24 NG/KG, PER MIN
     Route: 042
     Dates: start: 20170104
  15. BIOTIN [Concomitant]
     Active Substance: BIOTIN

REACTIONS (12)
  - Pulmonary oedema [Unknown]
  - Pericardial effusion [Unknown]
  - Scleroderma [Unknown]
  - Swelling [Unknown]
  - Paracentesis [Unknown]
  - Diarrhoea [Unknown]
  - Pericardial drainage [Unknown]
  - Flatulence [Unknown]
  - Abdominal distension [Unknown]
  - Discomfort [Unknown]
  - Aspiration pleural cavity [Unknown]
  - Ascites [Unknown]

NARRATIVE: CASE EVENT DATE: 20180529
